FAERS Safety Report 17132253 (Version 3)
Quarter: 2020Q1

REPORT INFORMATION
  Report Type: Other
  Country: US (occurrence: US)
  Receive Date: 20191210
  Receipt Date: 20200205
  Transmission Date: 20200409
  Serious: Yes (Hospitalization, Other)
  Sender: FDA-Public Use
  Company Number: US-AMAG PHARMACEUTICALS, INC.-AMAG201906240

PATIENT
  Age: 40 Year
  Sex: Female

DRUGS (5)
  1. MAKENA [Suspect]
     Active Substance: HYDROXYPROGESTERONE CAPROATE
     Indication: PREMATURE DELIVERY
  2. MAGNESIUM OXIDE. [Concomitant]
     Active Substance: MAGNESIUM OXIDE
     Indication: HIGH RISK PREGNANCY
     Dates: start: 20191016, end: 20191120
  3. MAKENA [Suspect]
     Active Substance: HYDROXYPROGESTERONE CAPROATE
     Indication: PREMATURE DELIVERY
  4. MAKENA [Suspect]
     Active Substance: HYDROXYPROGESTERONE CAPROATE
     Indication: PREMATURE DELIVERY
     Dosage: 250MG/ML, WEEKLY
     Route: 030
     Dates: start: 20190919, end: 20191114
  5. ASA [Concomitant]
     Active Substance: ASPIRIN
     Indication: HIGH RISK PREGNANCY
     Dates: start: 20190828, end: 20191120

REACTIONS (5)
  - Uterine rupture [Recovered/Resolved]
  - Premature labour [Recovered/Resolved]
  - Blood pressure increased [Unknown]
  - Premature separation of placenta [Recovered/Resolved]
  - Premature delivery [Recovered/Resolved]

NARRATIVE: CASE EVENT DATE: 20190919
